FAERS Safety Report 21927678 (Version 1)
Quarter: 2023Q1

REPORT INFORMATION
  Report Type: Spontaneous
  Country: DE (occurrence: DE)
  Receive Date: 20230130
  Receipt Date: 20230130
  Transmission Date: 20230418
  Serious: Yes (Life-Threatening, Other)
  Sender: FDA-Public Use
  Company Number: None

PATIENT
  Age: 65 Year
  Sex: Female

DRUGS (20)
  1. CLOZAPINE [Suspect]
     Active Substance: CLOZAPINE
     Indication: Product used for unknown indication
     Dosage: UNK 0-150MG
     Route: 048
     Dates: start: 20210715, end: 20210909
  2. RISPERIDONE [Concomitant]
     Active Substance: RISPERIDONE
     Dosage: 10 MILLIGRAM, QD
     Route: 048
     Dates: start: 20211007
  3. RISPERIDONE [Concomitant]
     Active Substance: RISPERIDONE
     Dosage: 9 MILLIGRAM, QD
     Route: 048
     Dates: start: 20210910, end: 20210911
  4. RISPERIDONE [Concomitant]
     Active Substance: RISPERIDONE
     Dosage: 8 MILLIGRAM, QD FOR SOME TIME
     Route: 048
     Dates: end: 20210909
  5. RISPERIDONE [Concomitant]
     Active Substance: RISPERIDONE
     Dosage: UNK 6-3MG UNTIL FURTHER
     Route: 048
     Dates: start: 20211015
  6. RISPERIDONE [Concomitant]
     Active Substance: RISPERIDONE
     Dosage: 12 MILLIGRAM, QD
     Route: 048
     Dates: start: 20210912, end: 20211006
  7. RISPERIDONE [Concomitant]
     Active Substance: RISPERIDONE
     Dosage: 8 MILLIGRAM, QD
     Route: 048
     Dates: start: 20211011, end: 20211014
  8. QUETIAPINE [Concomitant]
     Active Substance: QUETIAPINE
     Dosage: 800 MILLIGRAM, QD
     Route: 048
     Dates: start: 20210921
  9. QUETIAPINE [Concomitant]
     Active Substance: QUETIAPINE
     Dosage: 600 MILLIGRAM, QD UNTIL FURTHER
     Route: 048
     Dates: start: 20210929
  10. QUETIAPINE [Concomitant]
     Active Substance: QUETIAPINE
     Dosage: 700 MILLIGRAM, QD
     Route: 048
     Dates: start: 20210928
  11. QUETIAPINE [Concomitant]
     Active Substance: QUETIAPINE
     Dosage: 1000 MILLIGRAM, QD
     Route: 048
     Dates: start: 20210916, end: 20210920
  12. QUETIAPINE [Concomitant]
     Active Substance: QUETIAPINE
     Dosage: 800 MILLIGRAM, QD FOR SOME TIME
     Route: 048
     Dates: end: 20210915
  13. QUETIAPINE [Concomitant]
     Active Substance: QUETIAPINE
     Dosage: 50 MILLIGRAM, QD
     Route: 048
     Dates: start: 20211014, end: 20211018
  14. QUETIAPINE [Concomitant]
     Active Substance: QUETIAPINE
     Dosage: 50 MILLIGRAM, QD FOR SOME TIME
     Route: 048
     Dates: start: 20210909
  15. QUETIAPINE [Concomitant]
     Active Substance: QUETIAPINE
     Dosage: 100 MILLIGRAM, QD
     Route: 048
     Dates: start: 20210910, end: 20210926
  16. QUETIAPINE [Concomitant]
     Active Substance: QUETIAPINE
     Dosage: 50 MILLIGRAM, QD
     Route: 048
     Dates: start: 20210927, end: 20210929
  17. QUETIAPINE [Concomitant]
     Active Substance: QUETIAPINE
     Dosage: 50 MILLIGRAM, QD
     Route: 048
     Dates: start: 20211014, end: 20211018
  18. QUETIAPINE [Concomitant]
     Active Substance: QUETIAPINE
     Dosage: 50 MILLIGRAM, QD FOR SOME TIME
     Route: 048
     Dates: end: 20210909
  19. QUETIAPINE [Concomitant]
     Active Substance: QUETIAPINE
     Dosage: 100 MILLIGRAM, QD
     Route: 048
     Dates: start: 20210910, end: 20210926
  20. QUETIAPINE [Concomitant]
     Active Substance: QUETIAPINE
     Dosage: 50 MILLIGRAM, QD
     Route: 048
     Dates: start: 20210927, end: 20210929

REACTIONS (5)
  - Pulmonary infarction [Recovered/Resolved]
  - Pneumonia [Recovered/Resolved]
  - Agranulocytosis [Recovered/Resolved]
  - Pulmonary embolism [Recovered/Resolved]
  - Pyrexia [Recovered/Resolved]

NARRATIVE: CASE EVENT DATE: 20210909
